FAERS Safety Report 9542944 (Version 1)
Quarter: 2013Q3

REPORT INFORMATION
  Report Type: Spontaneous
  Country: US (occurrence: US)
  Receive Date: 20130923
  Receipt Date: 20130923
  Transmission Date: 20140515
  Serious: Yes (Hospitalization, Other)
  Sender: FDA-Public Use
  Company Number: US-VERTEX PHARMACEUTICALS INC-2013-009653

PATIENT
  Age: 56 Year
  Sex: Female

DRUGS (4)
  1. INCIVEK [Suspect]
     Indication: CHRONIC HEPATITIS C
     Dosage: 750 MG, TID
  2. PEGINTERFERON ALFA-2A [Suspect]
     Indication: CHRONIC HEPATITIS C
     Dosage: 180 ?G, QW
  3. RIBAVIRIN [Suspect]
     Indication: CHRONIC HEPATITIS C
     Dosage: 1000 MG, QD
  4. CORTICOSTEROIDS [Suspect]
     Route: 061

REACTIONS (3)
  - Adrenal insufficiency [Recovered/Resolved]
  - Drug interaction [Unknown]
  - Drug eruption [Recovered/Resolved]
